FAERS Safety Report 4690924-2 (Version None)
Quarter: 2005Q2

REPORT INFORMATION
  Report Type: 
  Country: None (occurrence: None)
  Receive Date: 20050615
  Receipt Date: 20050117
  Transmission Date: 20051028
  Serious: Yes (Life-Threatening, Hospitalization)
  Sender: FDA-Public Use
  Company Number: FR-ROCHE-392692

PATIENT
  Age: 41 Year
  Sex: Male

DRUGS (18)
  1. DACLIZUMAB [Suspect]
     Route: 042
     Dates: start: 20041223, end: 20041223
  2. DACLIZUMAB [Suspect]
     Route: 042
     Dates: start: 20041229, end: 20041229
  3. MYCOPHENOLATE MOFETIL [Suspect]
     Route: 042
     Dates: start: 20041223, end: 20041225
  4. MYCOPHENOLATE MOFETIL [Suspect]
     Route: 048
     Dates: start: 20041226, end: 20050124
  5. MYCOPHENOLATE MOFETIL [Suspect]
     Route: 048
     Dates: start: 20050125
  6. TACROLIMUS [Suspect]
     Dosage: ADJUSTMENT TO REACH PREDEFINED TARGET LEVELS.
     Route: 065
     Dates: start: 20041227
  7. METHYLPREDNISOLONE [Suspect]
     Dosage: TAPER ACCORDING TO LOCAL PROTOCOL.
     Route: 065
     Dates: start: 20041223, end: 20041227
  8. PREDNISONE TAB [Suspect]
     Dosage: TAPER ACCORDING TO LOCAL PROTOCOL.
     Route: 065
     Dates: start: 20041228
  9. NEFOPAM [Concomitant]
     Indication: PROPHYLAXIS
     Dates: start: 20041222, end: 20041226
  10. PARACETAMOL [Concomitant]
     Indication: PROPHYLAXIS
     Dates: start: 20041222, end: 20050110
  11. OMEPRAZOLE [Concomitant]
     Indication: PROPHYLAXIS
     Dates: start: 20041222, end: 20050124
  12. URAPIDIL [Concomitant]
     Indication: HYPERTENSION
     Dates: start: 20041225, end: 20050105
  13. AMLODIPINE [Concomitant]
     Indication: HYPERTENSION
     Dates: start: 20041225
  14. INSULIN [Concomitant]
     Dates: start: 20041224
  15. ACEBUTOLOL [Concomitant]
     Indication: HYPERTENSION
     Dates: start: 20041228
  16. FUROSEMIDE [Concomitant]
     Indication: PROPHYLAXIS
     Dates: start: 20041224, end: 20041226
  17. BACTRIM [Concomitant]
     Indication: PROPHYLAXIS
     Dates: start: 20050105
  18. BROMAZEPAM [Concomitant]
     Indication: INSOMNIA
     Dates: start: 20041227, end: 20050105

REACTIONS (7)
  - DISEASE RECURRENCE [None]
  - GAMMA-GLUTAMYLTRANSFERASE DECREASED [None]
  - HEPATIC HAEMATOMA [None]
  - HEPATIC HAEMORRHAGE [None]
  - HEPATITIS C [None]
  - HYPOTENSION [None]
  - INSOMNIA [None]
